FAERS Safety Report 17244184 (Version 1)
Quarter: 2020Q1

REPORT INFORMATION
  Report Type: Spontaneous
  Country: US (occurrence: US)
  Receive Date: 20200107
  Receipt Date: 20200107
  Transmission Date: 20200409
  Serious: No
  Sender: FDA-Public Use
  Company Number: US-GALDERMA-US19053436

PATIENT
  Sex: Male

DRUGS (1)
  1. METRONIDAZOLE LOTION (METRONIDAZOLE) 0.75% [Suspect]
     Active Substance: METRONIDAZOLE
     Indication: ACNE
     Dosage: 0.75%
     Route: 061

REACTIONS (5)
  - Poor quality product administered [Recovered/Resolved]
  - Seborrhoea [Unknown]
  - Drug ineffective for unapproved indication [Unknown]
  - Product physical consistency issue [Recovered/Resolved]
  - Product use in unapproved indication [Recovered/Resolved]

NARRATIVE: CASE EVENT DATE: 2019
